FAERS Safety Report 10696747 (Version 2)
Quarter: 2015Q1

REPORT INFORMATION
  Report Type: Spontaneous
  Country: HU (occurrence: HU)
  Receive Date: 20150108
  Receipt Date: 20150109
  Transmission Date: 20150721
  Serious: Yes (Hospitalization)
  Sender: FDA-Public Use
  Company Number: HU-ROCHE-1518379

PATIENT
  Sex: Female

DRUGS (2)
  1. AVASTIN [Suspect]
     Active Substance: BEVACIZUMAB
     Indication: COLORECTAL CANCER METASTATIC
     Route: 042
     Dates: start: 20141119, end: 2015
  2. XELODA [Concomitant]
     Active Substance: CAPECITABINE

REACTIONS (2)
  - Atrial fibrillation [Recovered/Resolved]
  - Hypertension [Recovered/Resolved]
